FAERS Safety Report 20883385 (Version 2)
Quarter: 2022Q2

REPORT INFORMATION
  Report Type: Spontaneous
  Country: JP (occurrence: JP)
  Receive Date: 20220527
  Receipt Date: 20220611
  Transmission Date: 20220721
  Serious: Yes (Other)
  Sender: FDA-Public Use
  Company Number: JP-MACLEODS PHARMACEUTICALS US LTD-MAC2022035805

PATIENT

DRUGS (2)
  1. SILDENAFIL [Suspect]
     Active Substance: SILDENAFIL
     Indication: Product used for unknown indication
     Dosage: 100 MILLIGRAM, QD (1 DF)
     Route: 065
  2. SILDENAFIL [Suspect]
     Active Substance: SILDENAFIL
     Dosage: 20 DOSAGE FORM, SINGLE (20 DF)
     Route: 065

REACTIONS (7)
  - Suicide attempt [Unknown]
  - Retinal toxicity [Not Recovered/Not Resolved]
  - Colour blindness [Recovering/Resolving]
  - Photophobia [Recovering/Resolving]
  - Visual field defect [Recovering/Resolving]
  - Vision blurred [Recovering/Resolving]
  - Intentional overdose [Unknown]
